FAERS Safety Report 7397415-9 (Version None)
Quarter: 2011Q2

REPORT INFORMATION
  Report Type: 
  Country: None (occurrence: None)
  Receive Date: 20110406
  Receipt Date: 20110325
  Transmission Date: 20111010
  Serious: Yes (Other)
  Sender: FDA-Public Use
  Company Number: JP-ROCHE-769233

PATIENT
  Age: 3 Year
  Sex: Female

DRUGS (1)
  1. TAMIFLU [Suspect]
     Indication: INFLUENZA
     Dosage: DOSAGE IS UNCERTAIN
     Route: 048
     Dates: start: 20110324, end: 20110324

REACTIONS (1)
  - LOSS OF CONSCIOUSNESS [None]
